FAERS Safety Report 4342604-0 (Version None)
Quarter: 2004Q2

REPORT INFORMATION
  Report Type: 
  Country: None (occurrence: None)
  Receive Date: 20040416
  Receipt Date: 20040405
  Transmission Date: 20050107
  Serious: Yes (Hospitalization)
  Sender: FDA-Public Use
  Company Number: 2004CG00668

PATIENT
  Age: 54 Year
  Sex: Female
  Weight: 64 kg

DRUGS (2)
  1. OMEPRAZOLE [Suspect]
     Indication: GASTRIC ULCER HAEMORRHAGE
     Dates: end: 20031201
  2. OMEPRAZOLE [Suspect]
     Indication: PERFORATED ULCER
     Dates: end: 20031201

REACTIONS (2)
  - CYTOLYTIC HEPATITIS [None]
  - HEPATITIS CHOLESTATIC [None]
